FAERS Safety Report 6442509-5 (Version None)
Quarter: 2009Q4

REPORT INFORMATION
  Report Type: 
  Country: None (occurrence: None)
  Receive Date: 20091112
  Receipt Date: 20091103
  Transmission Date: 20100525
  Serious: Yes (Congenital Anomaly)
  Sender: FDA-Public Use
  Company Number: ADR50102009

PATIENT

DRUGS (1)
  1. LAMOTRIGINE [Suspect]
     Indication: EPILEPSY
     Dosage: UNKNOWN
     Route: 064

REACTIONS (2)
  - CONGENITAL DIAPHRAGMATIC HERNIA [None]
  - MATERNAL DRUGS AFFECTING FOETUS [None]
